FAERS Safety Report 6302266-X (Version None)
Quarter: 2009Q3

REPORT INFORMATION
  Report Type: 
  Country: None (occurrence: None)
  Receive Date: 20090810
  Receipt Date: 20070706
  Transmission Date: 20100115
  Serious: Yes (Hospitalization, Other)
  Sender: FDA-Public Use
  Company Number: US-ASTRAZENECA-2006UW23714

PATIENT
  Age: 34 Year
  Sex: Female

DRUGS (9)
  1. SEROQUEL [Suspect]
     Indication: INSOMNIA
     Route: 048
     Dates: start: 20030910
  2. SEROQUEL [Suspect]
     Indication: SLEEP DISORDER
     Route: 048
     Dates: start: 20030910
  3. ZYPREXA [Concomitant]
  4. TOPAMAX [Concomitant]
     Route: 048
     Dates: start: 20030410, end: 20070111
  5. SYNTHROID [Concomitant]
     Dosage: 75 MCG DAILY, 2 MG
     Dates: start: 20030910
  6. TOPROL-XL [Concomitant]
     Indication: HEART RATE ABNORMAL
     Dates: start: 20040701
  7. DEPAKOTE [Concomitant]
     Route: 048
     Dates: start: 20000613
  8. PROTONIX [Concomitant]
     Indication: GASTROOESOPHAGEAL REFLUX DISEASE
     Dates: start: 20040322
  9. PROTONIX [Concomitant]
     Indication: GASTRITIS
     Dates: start: 20040322

REACTIONS (4)
  - PANCREATIC DISORDER [None]
  - PANCREATITIS [None]
  - PANCREATITIS ACUTE [None]
  - PANCREATITIS CHRONIC [None]
